FAERS Safety Report 14079848 (Version 1)
Quarter: 2017Q4

REPORT INFORMATION
  Report Type: Spontaneous
  Country: US (occurrence: US)
  Receive Date: 20171012
  Receipt Date: 20171012
  Transmission Date: 20180321
  Serious: No
  Sender: FDA-Public Use
  Company Number: US-AMNEAL PHARMACEUTICALS-2017AMN00839

PATIENT
  Age: 54 Year
  Sex: Female
  Weight: 136.5 kg

DRUGS (7)
  1. HYDROCODONE [Concomitant]
     Active Substance: HYDROCODONE
  2. CALCIUM [Concomitant]
     Active Substance: CALCIUM
  3. XANAX [Concomitant]
     Active Substance: ALPRAZOLAM
  4. LEVOTHYROXINE TABLETS [Concomitant]
     Active Substance: LEVOTHYROXINE
     Dosage: UNK
  5. MORPHINE [Concomitant]
     Active Substance: MORPHINE
  6. MULTIVITAMINS [Concomitant]
     Active Substance: VITAMINS
  7. DICLOFENAC SODIUM. [Suspect]
     Active Substance: DICLOFENAC SODIUM
     Indication: OSTEOARTHRITIS
     Dosage: UNK
     Dates: start: 20170827, end: 20170829

REACTIONS (2)
  - Localised infection [Not Recovered/Not Resolved]
  - Urticaria [Not Recovered/Not Resolved]

NARRATIVE: CASE EVENT DATE: 20170828
